FAERS Safety Report 5068129-5 (Version None)
Quarter: 2006Q3

REPORT INFORMATION
  Report Type: 
  Country: None (occurrence: None)
  Receive Date: 20060731
  Receipt Date: 20060723
  Transmission Date: 20061208
  Serious: Yes (Hospitalization)
  Sender: FDA-Public Use
  Company Number: 2006-07-1729

PATIENT
  Age: 52 Year
  Sex: Female

DRUGS (15)
  1. PEG-INTRON [Suspect]
     Indication: HEPATITIS C
     Dosage: 150 MCQ QWK SUBCUTANEOUS
     Route: 058
     Dates: start: 20060306
  2. RIBAVIRIN [Suspect]
     Indication: HEPATITIS C
     Dosage: 1200 MG QD ORAL
     Route: 048
     Dates: start: 20060306
  3. ADVAIR DISKUS 100/50 [Concomitant]
  4. DILAUDID TABLETS [Concomitant]
  5. DILTIAZEM CAPSULES [Concomitant]
  6. KLOR-CON EXTENDED RELEASE TABLET [Concomitant]
  7. LAMICTAL [Concomitant]
  8. LEVOTHYROXINE SODIUM TABLETS [Concomitant]
  9. METHADONE HYDROCHLORIDE TABLETS [Concomitant]
  10. PREMARIN [Concomitant]
  11. PRILOSEC [Concomitant]
  12. RESTORIL [Concomitant]
  13. SOMA COMPOUND TABLETS [Concomitant]
  14. TORSEMIDE TABLETS [Concomitant]
  15. ZOLOFT [Concomitant]

REACTIONS (17)
  - ASTHENIA [None]
  - BLOOD ELECTROLYTES ABNORMAL [None]
  - BLOOD POTASSIUM DECREASED [None]
  - CYSTITIS [None]
  - DEHYDRATION [None]
  - DEPRESSION [None]
  - DYSPHAGIA [None]
  - MEMORY IMPAIRMENT [None]
  - OESOPHAGEAL PAIN [None]
  - OESOPHAGITIS [None]
  - ORAL CANDIDIASIS [None]
  - PRODUCTIVE COUGH [None]
  - SKIN BURNING SENSATION [None]
  - SKIN CHAPPED [None]
  - SPUTUM DISCOLOURED [None]
  - STOMATITIS [None]
  - TREATMENT NONCOMPLIANCE [None]
